FAERS Safety Report 5131261-1 (Version None)
Quarter: 2006Q4

REPORT INFORMATION
  Report Type: 
  Country: None (occurrence: None)
  Receive Date: 20061020
  Receipt Date: 20061009
  Transmission Date: 20070319
  Serious: Yes (Other)
  Sender: FDA-Public Use
  Company Number: AT-JNJFOC-20060906258

PATIENT
  Age: 5 Decade
  Sex: Female
  Weight: 58 kg

DRUGS (2)
  1. REMICADE [Suspect]
     Indication: CROHN'S DISEASE
     Dosage: 2 INFUSIONS
     Route: 042
  2. THIOGUANIN [Concomitant]
     Indication: CROHN'S DISEASE
     Route: 048

REACTIONS (4)
  - CONJUNCTIVITIS [None]
  - NASOPHARYNGITIS [None]
  - RHINITIS ALLERGIC [None]
  - URTICARIA GENERALISED [None]
